FAERS Safety Report 22047964 (Version 4)
Quarter: 2023Q2

REPORT INFORMATION
  Report Type: Spontaneous
  Country: KZ (occurrence: KZ)
  Receive Date: 20230301
  Receipt Date: 20230414
  Transmission Date: 20230721
  Serious: Yes (Other)
  Sender: FDA-Public Use
  Company Number: KZ-ASTELLAS-2023US006846

PATIENT
  Age: 36 Year
  Sex: Female
  Weight: 53 kg

DRUGS (5)
  1. PROGRAF [Suspect]
     Active Substance: TACROLIMUS
     Indication: Liver transplant
     Dosage: 1 MG, TWICE DAILY (1MG + 1MG)
     Route: 048
     Dates: start: 20230217, end: 20230217
  2. PROGRAF [Suspect]
     Active Substance: TACROLIMUS
     Dosage: 1MG + 2MG , TWICE DAILY
     Route: 048
     Dates: start: 20230218, end: 20230218
  3. PROGRAF [Suspect]
     Active Substance: TACROLIMUS
     Indication: Liver transplant
     Dosage: 0.5 MG, TWICE DAILY (0.5 MG + 0.5MG)
     Route: 048
     Dates: start: 20230219, end: 20230219
  4. PROGRAF [Suspect]
     Active Substance: TACROLIMUS
     Dosage: 0.5 MG, TWICE DAILY (0.5 MG + 0.5MG)
     Route: 048
     Dates: start: 20230220, end: 20230220
  5. PROGRAF [Suspect]
     Active Substance: TACROLIMUS
     Dosage: 0.5 MG, ONCE (IN MORNING AND EVENING DOSE CANCELLED)
     Route: 048
     Dates: start: 20230221, end: 20230221

REACTIONS (4)
  - Toxic encephalopathy [Recovered/Resolved]
  - Hallucination, visual [Recovered/Resolved]
  - Asthenia [Recovered/Resolved]
  - Lethargy [Recovered/Resolved]

NARRATIVE: CASE EVENT DATE: 20230219
